FAERS Safety Report 6080342-7 (Version None)
Quarter: 2009Q1

REPORT INFORMATION
  Report Type: 
  Country: None (occurrence: None)
  Receive Date: 20090217
  Receipt Date: 20090216
  Transmission Date: 20090719
  Serious: Yes (Death, Hospitalization)
  Sender: FDA-Public Use
  Company Number: US-BAYER-200836302NA

PATIENT
  Age: 67 Year
  Sex: Male
  Weight: 98 kg

DRUGS (18)
  1. SORAFENIB [Suspect]
     Indication: RENAL CANCER
     Dosage: TOTAL DAILY DOSE: 800 MG  UNIT DOSE: 200 MG
     Route: 048
     Dates: start: 20080813, end: 20080817
  2. ALLOPURINOL [Concomitant]
     Dosage: TOTAL DAILY DOSE: 300 MG
  3. AMLODIPINE [Concomitant]
     Dosage: TOTAL DAILY DOSE: 10 MG
     Route: 048
  4. ASPIRIN [Concomitant]
     Dosage: TOTAL DAILY DOSE: 81 MG
  5. BENZOIN TOP TINCTURE [Concomitant]
     Route: 061
  6. DOCUSATE NA [Concomitant]
     Dosage: TOTAL DAILY DOSE: 100 MG
     Route: 048
  7. FINASTERIDE [Concomitant]
     Dosage: TOTAL DAILY DOSE: 5 MG
     Route: 048
  8. FLUNISOLIDE SPRAY [Concomitant]
     Route: 045
  9. ACETAMINOPHEN AND HYDROCODONE BITARTRATE [Concomitant]
     Indication: PAIN
     Route: 048
  10. LEVOTHYROXINE SODIUM [Concomitant]
     Route: 048
  11. ACETAMINOPHEN AND OXYCODONE HCL [Concomitant]
     Indication: PAIN
     Route: 048
  12. PSYLLIUM [Concomitant]
     Route: 048
  13. SENNA [Concomitant]
     Dosage: TOTAL DAILY DOSE: 187 MG
     Route: 048
  14. SERTRALINE [Concomitant]
     Dosage: TOTAL DAILY DOSE: 100 MG
     Route: 048
  15. SODIUM BICARB [Concomitant]
     Dosage: TOTAL DAILY DOSE: 1300 MG
     Route: 048
  16. COUMADIN [Concomitant]
  17. VICODIN [Concomitant]
     Indication: PAIN IN EXTREMITY
  18. PERCOCET [Concomitant]
     Indication: PAIN IN EXTREMITY

REACTIONS (7)
  - CHEST PAIN [None]
  - DEATH [None]
  - DEEP VEIN THROMBOSIS [None]
  - DYSPNOEA [None]
  - HYPOVOLAEMIC SHOCK [None]
  - INTERNATIONAL NORMALISED RATIO INCREASED [None]
  - RETROPERITONEAL HAEMATOMA [None]
